FAERS Safety Report 9862283 (Version 2)
Quarter: 2014Q1

REPORT INFORMATION
  Report Type: Report from Study
  Country: US (occurrence: US)
  Receive Date: 20140203
  Receipt Date: 20140210
  Transmission Date: 20141002
  Serious: Yes (Death)
  Sender: FDA-Public Use
  Company Number: US-B.I. PHARMACEUTICALS,INC./RIDGEFIELD-2014-RU-00060BP

PATIENT
  Age: 80 Year
  Sex: Female
  Weight: 84.4 kg

DRUGS (2)
  1. DABIGATRAN [Suspect]
     Indication: CEREBROVASCULAR ACCIDENT PROPHYLAXIS
     Dates: start: 20140120, end: 20140126
  2. DABIGATRAN [Suspect]
     Indication: ATRIAL FIBRILLATION

REACTIONS (1)
  - Cardiac arrest [Fatal]
